FAERS Safety Report 8307005-9 (Version None)
Quarter: 2012Q2

REPORT INFORMATION
  Report Type: 
  Country: None (occurrence: None)
  Receive Date: 20120424
  Receipt Date: 20120417
  Transmission Date: 20120825
  Serious: Yes (Death, Congenital Anomaly)
  Sender: FDA-Public Use
  Company Number: GB-UCBSA-055509

PATIENT

DRUGS (1)
  1. KEPPRA [Suspect]
     Dosage: UNKNOWN
     Route: 064

REACTIONS (3)
  - VOLVULUS OF SMALL BOWEL [None]
  - FOETAL EXPOSURE DURING PREGNANCY [None]
  - CONGENITAL ANOMALY [None]
